FAERS Safety Report 24765811 (Version 1)
Quarter: 2024Q4

REPORT INFORMATION
  Report Type: Spontaneous
  Country: ZA (occurrence: ZA)
  Receive Date: 20241223
  Receipt Date: 20241223
  Transmission Date: 20250115
  Serious: Yes (Hospitalization)
  Sender: AMGEN
  Company Number: ZA-SERVIER-S24016545

PATIENT
  Age: 93 Year
  Sex: Female

DRUGS (22)
  1. IVABRADINE HYDROCHLORIDE [Suspect]
     Active Substance: IVABRADINE HYDROCHLORIDE
     Indication: Angina pectoris
     Dosage: 5 MG TAKE ONE TABLET ONCE DAILY
     Route: 048
  2. ERGOCALCIFEROL [Concomitant]
     Active Substance: ERGOCALCIFEROL
     Indication: Product used for unknown indication
     Dosage: 50000 IU TAKE ONE TABLET WEEKLY
     Route: 048
  3. Betadexamine [Concomitant]
     Indication: Product used for unknown indication
     Dosage: TAKE ONE TABLET AT NIGHT
     Route: 048
  4. VERAPAMIL HYDROCHLORIDE [Concomitant]
     Active Substance: VERAPAMIL HYDROCHLORIDE
     Indication: Hypertension
     Dosage: 240 MG TAKE ONE TABLET ONCE DAILY
     Route: 048
  5. ZITHROMAX [Concomitant]
     Active Substance: AZITHROMYCIN DIHYDRATE
     Indication: Product used for unknown indication
     Dosage: 500 MG TAKE HALF A TABLET TWICE A WEEK
     Route: 048
  6. NEUROBION [Concomitant]
     Active Substance: CYANOCOBALAMIN\PYRIDOXINE\THIAMINE
     Indication: Product used for unknown indication
     Dosage: TAKE ONE TABLET ONCE DAILY
     Route: 048
  7. OMEGA 3 [Concomitant]
     Active Substance: CAPSAICIN
     Indication: Product used for unknown indication
     Dosage: 1000 MG TAKE ONE CAPSULE ONCE DAILY
     Route: 048
  8. PREDNISONE [Concomitant]
     Active Substance: PREDNISONE
     Indication: Product used for unknown indication
     Dosage: 5 MG TAKE 8 TABLETS ONCE DAILY
     Route: 048
  9. PREDNISONE [Concomitant]
     Active Substance: PREDNISONE
     Dosage: 5 MG TAKE FOUR TABLETS ONCE DAILY
     Route: 048
  10. FLUTICASONE PROPIONATE\SALMETEROL XINAFOATE [Concomitant]
     Active Substance: FLUTICASONE PROPIONATE\SALMETEROL XINAFOATE
     Indication: Asthma
     Dosage: 50/500 MCG INHALE ONE MEASURED DOSE/PUFF TWICE A DAY
     Route: 055
  11. VALSARTAN [Concomitant]
     Active Substance: VALSARTAN
     Indication: Hypertension
     Dosage: 160 MG TAKE ONE TABLET ONCE DAILY
     Route: 048
  12. VALSARTAN [Concomitant]
     Active Substance: VALSARTAN
     Dosage: 80 MG TAKE ONE TABLET ONCE DAILY
     Route: 048
  13. Spiractin [Concomitant]
     Indication: Hypertension
     Dosage: 25 MG TAKE ONE TABLET ONCE DAILY
     Route: 048
  14. ECOTRIN [Concomitant]
     Active Substance: ASPIRIN
     Indication: Product used for unknown indication
     Dosage: 81 MG TAKE ONE TABLET ONCE DAILY
     Route: 048
  15. PANTOPRAZOLE SODIUM [Concomitant]
     Active Substance: PANTOPRAZOLE SODIUM
     Indication: Ulcer
     Dosage: 20 MG TAKE ONE TABLET ONCE DAILY
     Route: 048
  16. AMLODIPINE [Concomitant]
     Active Substance: AMLODIPINE BESYLATE
     Indication: Hypertension
     Dosage: 10 MG TAKE ONE TABLET ONCE DAILY
     Route: 048
  17. AMLODIPINE [Concomitant]
     Active Substance: AMLODIPINE BESYLATE
     Dosage: 5 MG TAKE ONE TABLET ONCE DAILY
     Route: 048
  18. LANSOPRAZOLE [Concomitant]
     Active Substance: LANSOPRAZOLE
     Indication: Ulcer
     Dosage: 15 MG TAKE ONE CAPSULE IN THE MORNING
     Route: 048
  19. FLUTICASONE PROPIONATE\SALMETEROL XINAFOATE [Concomitant]
     Active Substance: FLUTICASONE PROPIONATE\SALMETEROL XINAFOATE
     Indication: Asthma
     Dosage: 50/500 MCG INHALE ONE MEASURED DOSE/PUFF TWICE A DAY
     Route: 055
  20. ACETYLCYSTEINE [Concomitant]
     Active Substance: ACETYLCYSTEINE
     Indication: Product used for unknown indication
     Dosage: 200 MG TAKE ONE DISSOLVED IN WATER THREE TIMES A DAY
     Route: 048
  21. FLUTICASONE PROPIONATE [Concomitant]
     Active Substance: FLUTICASONE PROPIONATE
     Indication: Hypersensitivity
     Dosage: 50 MCG AS DIRECTED
     Route: 048
  22. CELECOXIB [Concomitant]
     Active Substance: CELECOXIB
     Indication: Pain
     Dosage: 200 MG TAKE ONE CAPSULE ONCE DAILY
     Route: 048

REACTIONS (2)
  - Hospitalisation [Unknown]
  - Product use issue [Recovered/Resolved]
